FAERS Safety Report 11757321 (Version 1)
Quarter: 2015Q4

REPORT INFORMATION
  Report Type: Spontaneous
  Country: US (occurrence: US)
  Receive Date: 20151120
  Receipt Date: 20151120
  Transmission Date: 20160304
  Serious: No
  Sender: FDA-Public Use
  Company Number: US-AMGEN-USASP2015120985

PATIENT
  Age: 60 Year
  Sex: Male

DRUGS (12)
  1. ENBREL [Suspect]
     Active Substance: ETANERCEPT
     Indication: PRODUCT USED FOR UNKNOWN INDICATION
     Dosage: 50 MG, ONCE WEEKLY
     Route: 058
     Dates: start: 20140822
  2. BUPROPION. [Concomitant]
     Active Substance: BUPROPION
     Dosage: 150 MG SR
  3. COLCHICINE. [Concomitant]
     Active Substance: COLCHICINE
     Dosage: 0.6 MG, UNK
  4. GABAPENTIN. [Concomitant]
     Active Substance: GABAPENTIN
     Dosage: 600 MG, UNK
  5. LORAZEPAM. [Concomitant]
     Active Substance: LORAZEPAM
     Dosage: 0.5 MG, UNK
  6. PIOGLITAZONE. [Concomitant]
     Active Substance: PIOGLITAZONE
     Dosage: 30 MG, UNK
  7. POTASSIUM CL [Concomitant]
     Active Substance: POTASSIUM CHLORIDE
     Dosage: 10 MEQ ER
  8. HYDROMORPHON AL [Concomitant]
     Dosage: 2 MG, UNK
  9. GLIMEPIRIDE. [Concomitant]
     Active Substance: GLIMEPIRIDE
     Dosage: 4 MG, UNK
  10. BACTRIM DS [Concomitant]
     Active Substance: SULFAMETHOXAZOLE\TRIMETHOPRIM
     Dosage: 800-160
  11. PANTOPRAZOLE [Concomitant]
     Active Substance: PANTOPRAZOLE SODIUM
     Dosage: 40 MG, UNK
  12. RANITIDINE HCL [Concomitant]
     Active Substance: RANITIDINE HYDROCHLORIDE
     Dosage: UNK

REACTIONS (1)
  - Drug ineffective [Not Recovered/Not Resolved]
